FAERS Safety Report 6143428-4 (Version None)
Quarter: 2009Q2

REPORT INFORMATION
  Report Type: 
  Country: None (occurrence: None)
  Receive Date: 20090403
  Receipt Date: 20090316
  Transmission Date: 20091009
  Serious: Yes (Other)
  Sender: FDA-Public Use
  Company Number: ES-CELGENEUS-144-21880-09032181

PATIENT
  Sex: Female

DRUGS (2)
  1. REVLIMID [Suspect]
     Indication: MYELOFIBROSIS
     Route: 048
     Dates: start: 20071024, end: 20080327
  2. ACETYLSALICYLIC ACID [Concomitant]
     Route: 065

REACTIONS (5)
  - ANAEMIA [None]
  - ASTHENIA [None]
  - DRUG INEFFECTIVE [None]
  - NEUROMUSCULAR TOXICITY [None]
  - NEUTROPENIA [None]
